FAERS Safety Report 10655275 (Version 1)
Quarter: 2014Q4

REPORT INFORMATION
  Report Type: Spontaneous
  Country: DE (occurrence: DE)
  Receive Date: 20141216
  Receipt Date: 20141216
  Transmission Date: 20150529
  Serious: Yes (Other)
  Sender: FDA-Public Use
  Company Number: DE-PFIZER INC-2014340015

PATIENT
  Sex: Female

DRUGS (1)
  1. ZYVOXID [Suspect]
     Active Substance: LINEZOLID
     Indication: PNEUMONIA
     Dosage: 600 MG, 2X/DAY
     Route: 042
     Dates: start: 201411

REACTIONS (2)
  - Drug effect incomplete [Unknown]
  - Sepsis [Unknown]
